FAERS Safety Report 17040730 (Version 1)
Quarter: 2019Q4

REPORT INFORMATION
  Report Type: Report from Study
  Country: None (occurrence: BR)
  Receive Date: 20191117
  Receipt Date: 20191117
  Transmission Date: 20200122
  Serious: Yes (Other)
  Sender: FDA-Public Use
  Company Number: BR-ABBVIE-19K-020-2999114-00

PATIENT
  Age: 39 Year
  Sex: Female
  Weight: 105 kg

DRUGS (15)
  1. AEROLIN [Concomitant]
     Active Substance: ALBUTEROL
     Indication: ASTHMA
     Route: 048
  2. CYCLOBENZAPRINE. [Concomitant]
     Active Substance: CYCLOBENZAPRINE
     Indication: ANKYLOSING SPONDYLITIS
     Route: 048
  3. DONAREN [Concomitant]
     Active Substance: TRAZODONE HYDROCHLORIDE
     Indication: DEPRESSION
     Route: 048
  4. HUMIRA [Suspect]
     Active Substance: ADALIMUMAB
     Indication: UVEITIS
     Route: 058
  5. SAXENDA [Concomitant]
     Active Substance: LIRAGLUTIDE
     Indication: DIABETES MELLITUS
     Route: 058
  6. TILATIL [Concomitant]
     Active Substance: TENOXICAM
     Indication: ANKYLOSING SPONDYLITIS
     Route: 048
  7. MESALAZINE [Concomitant]
     Active Substance: MESALAMINE
     Indication: DEPRESSION
     Route: 048
  8. FRONTAL [Concomitant]
     Active Substance: ALPRAZOLAM
     Indication: DEPRESSION
     Route: 048
  9. ALENIA [Concomitant]
     Indication: ASTHMA
     Dosage: 12/400
     Route: 048
  10. ESCITALOPRAM OXALATE. [Concomitant]
     Active Substance: ESCITALOPRAM OXALATE
     Indication: DEPRESSION
     Route: 048
  11. MODURETIC 5-50 [Concomitant]
     Active Substance: AMILORIDE HYDROCHLORIDE\HYDROCHLOROTHIAZIDE
     Indication: HYPERTENSION
     Route: 048
  12. OPTIVE [Concomitant]
     Active Substance: CARBOXYMETHYLCELLULOSE SODIUM\GLYCERIN
     Indication: UVEITIS
     Route: 047
  13. DIPIRAN [Concomitant]
     Indication: THYROID DISORDER
     Route: 048
  14. PREGABALIN. [Concomitant]
     Active Substance: PREGABALIN
     Indication: ANKYLOSING SPONDYLITIS
     Route: 048
  15. ZOLPIDEM [Concomitant]
     Active Substance: ZOLPIDEM TARTRATE
     Indication: DEPRESSION
     Route: 048

REACTIONS (18)
  - Overweight [Unknown]
  - Blood thyroid stimulating hormone abnormal [Unknown]
  - Eye pain [Unknown]
  - Stomatitis [Recovered/Resolved]
  - Haemoglobin abnormal [Unknown]
  - Haematocrit abnormal [Unknown]
  - Inflammation [Not Recovered/Not Resolved]
  - Gait disturbance [Recovered/Resolved]
  - Inflammation [Recovered/Resolved]
  - White blood cell disorder [Unknown]
  - Infection [Unknown]
  - Pain [Unknown]
  - Pyelonephritis [Recovered/Resolved]
  - Malabsorption [Unknown]
  - Therapeutic response unexpected [Unknown]
  - Asthma [Unknown]
  - Uveitis [Not Recovered/Not Resolved]
  - Crohn^s disease [Unknown]

NARRATIVE: CASE EVENT DATE: 20190430
